FAERS Safety Report 10936327 (Version 1)
Quarter: 2015Q1

REPORT INFORMATION
  Report Type: Spontaneous
  Country: None (occurrence: None)
  Receive Date: 20150320
  Receipt Date: 20150320
  Transmission Date: 20150721
  Serious: Yes (Hospitalization)
  Sender: FDA-Public Use
  Company Number: None

PATIENT
  Age: 41 Year
  Sex: Female
  Weight: 58.06 kg

DRUGS (1)
  1. MIRALAX [Suspect]
     Active Substance: POLYETHYLENE GLYCOL 3350
     Indication: CONSTIPATION
     Route: 048
     Dates: start: 20150307, end: 20150314

REACTIONS (5)
  - Pain [None]
  - Abdominal distension [None]
  - Dysuria [None]
  - Drug effect decreased [None]
  - Urinary retention [None]

NARRATIVE: CASE EVENT DATE: 20150312
